FAERS Safety Report 7178300-4 (Version None)
Quarter: 2010Q4

REPORT INFORMATION
  Report Type: 
  Country: None (occurrence: None)
  Receive Date: 20101220
  Receipt Date: 20101213
  Transmission Date: 20110411
  Serious: Yes (Congenital Anomaly)
  Sender: FDA-Public Use
  Company Number: DE-GILEAD-2010-0032307

PATIENT
  Sex: Male
  Weight: 1.6 kg

DRUGS (5)
  1. VIREAD [Suspect]
     Indication: HIV INFECTION
     Route: 064
     Dates: start: 20080829
  2. TRIZIVIR [Concomitant]
     Route: 064
     Dates: start: 20080829
  3. NORVIR [Concomitant]
     Route: 064
     Dates: start: 20080829
  4. PREZISTA [Concomitant]
     Route: 064
     Dates: start: 20081129
  5. ISENTRESS [Concomitant]
     Route: 064
     Dates: start: 20080829

REACTIONS (3)
  - HEMIVERTEBRA [None]
  - OESOPHAGEAL ATRESIA [None]
  - SPINE MALFORMATION [None]
